FAERS Safety Report 9265496 (Version 1)
Quarter: 2013Q2

REPORT INFORMATION
  Report Type: Spontaneous
  Country: US (occurrence: US)
  Receive Date: 20130501
  Receipt Date: 20130501
  Transmission Date: 20140414
  Serious: No
  Sender: FDA-Public Use
  Company Number: US-PFIZER INC-2013131720

PATIENT
  Age: 64 Year
  Sex: Female
  Weight: 66 kg

DRUGS (3)
  1. CADUET [Suspect]
     Indication: HYPERTENSION
     Dosage: 5 MG/10 MG, UNK
     Route: 048
     Dates: start: 1999, end: 2013
  2. CADUET [Suspect]
     Dosage: 10 MG/10 MG, UNK
     Route: 048
     Dates: start: 2013
  3. LEXAPRO [Concomitant]
     Dosage: 20 MG, UNK

REACTIONS (1)
  - Local swelling [Recovering/Resolving]
